FAERS Safety Report 7280945-8 (Version None)
Quarter: 2011Q1

REPORT INFORMATION
  Report Type: 
  Country: None (occurrence: None)
  Receive Date: 20110208
  Receipt Date: 20110128
  Transmission Date: 20110831
  Serious: Yes (Hospitalization)
  Sender: FDA-Public Use
  Company Number: US-ASTRAZENECA-2010SE36288

PATIENT
  Age: 69 Year
  Sex: Female
  Weight: 81.6 kg

DRUGS (3)
  1. NEXIUM [Suspect]
     Route: 048
     Dates: start: 20050101
  2. SYMBICORT [Suspect]
     Dosage: TOTAL DAILY DOSE 160-4.5MCG PRN
     Route: 055
     Dates: start: 20080101
  3. PULMICORT RESPULES [Suspect]
     Dosage: 0.5 MG TOTAL DAILY DOSE, TID
     Route: 055
     Dates: start: 20050101

REACTIONS (10)
  - KNEE ARTHROPLASTY [None]
  - SURGERY [None]
  - OSTEOARTHRITIS [None]
  - RECTOCELE REPAIR [None]
  - FOOT OPERATION [None]
  - NEUROPATHY PERIPHERAL [None]
  - GENITAL DISORDER FEMALE [None]
  - BLADDER PROLAPSE [None]
  - HYSTERECTOMY [None]
  - ANKLE FRACTURE [None]
